FAERS Safety Report 25213373 (Version 3)
Quarter: 2025Q2

REPORT INFORMATION
  Report Type: Spontaneous
  Country: JP (occurrence: JP)
  Receive Date: 20250418
  Receipt Date: 20250611
  Transmission Date: 20250717
  Serious: Yes (Other)
  Sender: ROCHE
  Company Number: JP-CHUGAI-2025007314

PATIENT
  Age: 67 Year
  Sex: Male
  Weight: 98 kg

DRUGS (8)
  1. ROZLYTREK [Suspect]
     Active Substance: ENTRECTINIB
     Indication: Lung adenocarcinoma
     Route: 048
     Dates: start: 20240920, end: 20241028
  2. ROZLYTREK [Suspect]
     Active Substance: ENTRECTINIB
     Route: 048
     Dates: start: 20241106
  3. HYDROCHLOROTHIAZIDE\VALSARTAN [Concomitant]
     Active Substance: HYDROCHLOROTHIAZIDE\VALSARTAN
     Route: 065
  4. AMLODIPINE BESYLATE [Concomitant]
     Active Substance: AMLODIPINE BESYLATE
     Route: 065
  5. FEBUXOSTAT [Concomitant]
     Active Substance: FEBUXOSTAT
     Route: 065
  6. BEZAFIBRATE [Concomitant]
     Active Substance: BEZAFIBRATE
     Route: 065
  7. SITAGLIPTIN [Concomitant]
     Active Substance: SITAGLIPTIN
     Route: 065
  8. METHYLCOBALAMIN [Concomitant]
     Active Substance: METHYLCOBALAMIN
     Route: 065

REACTIONS (7)
  - Blood creatinine increased [Not Recovered/Not Resolved]
  - Cognitive disorder [Recovered/Resolved]
  - Road traffic accident [Unknown]
  - Nasopharyngitis [Recovered/Resolved]
  - Wound infection [Recovered/Resolved]
  - Treatment noncompliance [Unknown]
  - Contusion [Recovered/Resolved]

NARRATIVE: CASE EVENT DATE: 20241019
